FAERS Safety Report 5020798-1 (Version None)
Quarter: 2006Q2

REPORT INFORMATION
  Report Type: 
  Country: None (occurrence: None)
  Receive Date: 20060608
  Receipt Date: 20060529
  Transmission Date: 20061013
  Serious: Yes (Hospitalization)
  Sender: FDA-Public Use
  Company Number: PHBS2006CH07976

PATIENT
  Age: 77 Year
  Sex: Female

DRUGS (2)
  1. CLOZAPINE [Suspect]
     Dosage: 150 MG/D
     Dates: start: 20060101, end: 20060328
  2. ELTROXIN [Concomitant]
     Dosage: 0.1 MG/D
     Dates: start: 20060101

REACTIONS (14)
  - AGRANULOCYTOSIS [None]
  - BICYTOPENIA [None]
  - BONE MARROW FAILURE [None]
  - C-REACTIVE PROTEIN INCREASED [None]
  - CHILLS [None]
  - DYSPHAGIA [None]
  - FATIGUE [None]
  - GENERAL PHYSICAL HEALTH DETERIORATION [None]
  - HERPES SIMPLEX [None]
  - PRODUCTIVE COUGH [None]
  - PYREXIA [None]
  - RED BLOOD CELL COUNT DECREASED [None]
  - RHINITIS [None]
  - WHITE BLOOD CELL COUNT DECREASED [None]
